FAERS Safety Report 8224543-8 (Version None)
Quarter: 2012Q1

REPORT INFORMATION
  Report Type: 
  Country: None (occurrence: None)
  Receive Date: 20120319
  Receipt Date: 20120305
  Transmission Date: 20120608
  Serious: Yes (Hospitalization)
  Sender: FDA-Public Use
  Company Number: UTC-016079

PATIENT
  Age: 31 Year
  Sex: Female
  Weight: 84 kg

DRUGS (6)
  1. ASPIRIN [Concomitant]
  2. COUMADIN [Concomitant]
  3. REMODULIN [Suspect]
     Indication: PULMONARY HYPERTENSION
     Dosage: 30.24 UG/KG (0.021 UG/KG, 1 IN 1 MIN), INTRAVENOUS
     Route: 042
     Dates: start: 20110721
  4. REMODULIN [Suspect]
     Indication: COR PULMONALE CHRONIC
     Dosage: 30.24 UG/KG (0.021 UG/KG, 1 IN 1 MIN), INTRAVENOUS
     Route: 042
     Dates: start: 20110721
  5. TRACLEER [Concomitant]
  6. REVATIO [Concomitant]

REACTIONS (1)
  - INJECTION SITE HAEMATOMA [None]
